FAERS Safety Report 14017481 (Version 1)
Quarter: 2017Q3

REPORT INFORMATION
  Report Type: Spontaneous
  Country: US (occurrence: US)
  Receive Date: 20170927
  Receipt Date: 20170927
  Transmission Date: 20171128
  Serious: Yes (Other)
  Sender: FDA-Public Use
  Company Number: US-GLAXOSMITHKLINE-US2017GSK148142

PATIENT
  Sex: Male
  Weight: 88.44 kg

DRUGS (1)
  1. WELLBUTRIN XL [Suspect]
     Active Substance: BUPROPION HYDROCHLORIDE
     Indication: ANXIETY DISORDER
     Dosage: 150 MG, QD
     Route: 048
     Dates: start: 2015

REACTIONS (7)
  - Restlessness [Recovering/Resolving]
  - Treatment noncompliance [Unknown]
  - Withdrawal syndrome [Recovering/Resolving]
  - Abdominal discomfort [Recovering/Resolving]
  - Discomfort [Recovering/Resolving]
  - Sweating fever [Recovering/Resolving]
  - Depression [Recovering/Resolving]
